FAERS Safety Report 5093287-6 (Version None)
Quarter: 2006Q3

REPORT INFORMATION
  Report Type: 
  Country: None (occurrence: None)
  Receive Date: 20060829
  Receipt Date: 20060829
  Transmission Date: 20061208
  Serious: Yes (Hospitalization)
  Sender: FDA-Public Use
  Company Number: None

PATIENT
  Sex: Male
  Weight: 82.4 kg

DRUGS (1)
  1. VALPROIC ACID SYRUP [Suspect]
     Indication: SCHIZOPHRENIA
     Dosage: 1000 MG BID PO
     Route: 048

REACTIONS (3)
  - HYPONATRAEMIA [None]
  - HYPOVOLAEMIA [None]
  - ORAL INTAKE REDUCED [None]
